FAERS Safety Report 5384053-2 (Version None)
Quarter: 2007Q3

REPORT INFORMATION
  Report Type: 
  Country: None (occurrence: None)
  Receive Date: 20070709
  Receipt Date: 20070119
  Transmission Date: 20080115
  Serious: Yes (Other)
  Sender: FDA-Public Use
  Company Number: US-2007-001952

PATIENT
  Age: 77 Year
  Sex: Male

DRUGS (1)
  1. ULTRAVIST 300 [Suspect]
     Indication: COMPUTERISED TOMOGRAM
     Dosage: 100 ML, 1 DOSE, INTRAVENOUS
     Route: 042
     Dates: start: 20070115, end: 20070115

REACTIONS (4)
  - DIZZINESS [None]
  - FLUSHING [None]
  - HYPOTENSION [None]
  - URTICARIA [None]
